FAERS Safety Report 10367734 (Version 1)
Quarter: 2014Q3

REPORT INFORMATION
  Report Type: Spontaneous
  Country: IT (occurrence: IT)
  Receive Date: 20140807
  Receipt Date: 20140807
  Transmission Date: 20150326
  Serious: Yes (Hospitalization)
  Sender: FDA-Public Use
  Company Number: IT-TEVA-498705ISR

PATIENT
  Age: 57 Year
  Sex: Female

DRUGS (3)
  1. MINIAS - 2,5 MG/ML GOCCE ORALI, SOLUZIONE - BAYER S.P.A. [Suspect]
     Active Substance: LORMETAZEPAM
     Indication: SUICIDE ATTEMPT
     Dosage: 20 ML TOTAL
     Route: 048
     Dates: start: 20140719, end: 20140719
  2. ALPRAZOLAM. [Suspect]
     Active Substance: ALPRAZOLAM
     Indication: SUICIDE ATTEMPT
     Dosage: 20 ML TOTAL
     Route: 048
     Dates: start: 20140719, end: 20140719
  3. CITALOPRAM [Suspect]
     Active Substance: CITALOPRAM HYDROBROMIDE
     Indication: SUICIDE ATTEMPT
     Dosage: 30 ML TOTAL
     Route: 048
     Dates: start: 20140719, end: 20140719

REACTIONS (3)
  - Sopor [Unknown]
  - Drug abuse [Unknown]
  - Suicide attempt [Unknown]

NARRATIVE: CASE EVENT DATE: 20140719
